FAERS Safety Report 6300785-3 (Version None)
Quarter: 2009Q3

REPORT INFORMATION
  Report Type: 
  Country: None (occurrence: None)
  Receive Date: 20090807
  Receipt Date: 20090616
  Transmission Date: 20100115
  Serious: Yes (Hospitalization)
  Sender: FDA-Public Use
  Company Number: FR-B.I. PHARMACEUTICALS,INC./RIDGEFIELD-2009-DE-04533GL

PATIENT
  Sex: Male

DRUGS (4)
  1. TELMISARTAN [Suspect]
     Indication: HYPERCHOLESTEROLAEMIA
     Route: 048
  2. ROSIGLIT.MAL+METFORM.HCL [Suspect]
     Indication: TYPE 2 DIABETES MELLITUS
     Route: 048
     Dates: end: 20090611
  3. ATORVASTATIN CALCIUM [Suspect]
     Indication: HYPERCHOLESTEROLAEMIA
     Route: 048
     Dates: end: 20090611
  4. LODOZ [Suspect]
     Indication: HYPERTENSION
     Route: 048

REACTIONS (6)
  - BLOOD CREATINE PHOSPHOKINASE INCREASED [None]
  - FALL [None]
  - HEPATIC STEATOSIS [None]
  - MUSCULAR WEAKNESS [None]
  - RHABDOMYOLYSIS [None]
  - TRANSAMINASES INCREASED [None]
